FAERS Safety Report 15407394 (Version 1)
Quarter: 2018Q3

REPORT INFORMATION
  Report Type: Spontaneous
  Country: CN (occurrence: CN)
  Receive Date: 20180920
  Receipt Date: 20180920
  Transmission Date: 20181010
  Serious: Yes (Death, Life-Threatening, Hospitalization, Other)
  Sender: FDA-Public Use
  Company Number: CN-BAUSCH-BL-2018-025421

PATIENT
  Age: 62 Year
  Sex: Male

DRUGS (1)
  1. PREDNISOLONE. [Suspect]
     Active Substance: PREDNISOLONE
     Indication: DERMATOMYOSITIS
     Route: 048
     Dates: start: 201503

REACTIONS (5)
  - Paraneoplastic syndrome [Unknown]
  - Hepatic cirrhosis [Unknown]
  - Hepatocellular carcinoma [Not Recovered/Not Resolved]
  - Hepatic failure [Fatal]
  - Hepatitis B [Recovered/Resolved]

NARRATIVE: CASE EVENT DATE: 2015
